FAERS Safety Report 10052865 (Version 1)
Quarter: 2014Q2

REPORT INFORMATION
  Report Type: Spontaneous
  Country: CO (occurrence: CO)
  Receive Date: 20140402
  Receipt Date: 20140402
  Transmission Date: 20141212
  Serious: Yes (Hospitalization, Other)
  Sender: FDA-Public Use
  Company Number: CO-PFIZER INC-2014091712

PATIENT
  Age: 75 Year
  Sex: Female

DRUGS (1)
  1. LYRICA [Suspect]
     Indication: LUMBAR SPINAL STENOSIS
     Dosage: 225 MG, DAILY
     Route: 048
     Dates: start: 2011

REACTIONS (1)
  - Pulmonary embolism [Not Recovered/Not Resolved]
